FAERS Safety Report 5584255-6 (Version None)
Quarter: 2008Q1

REPORT INFORMATION
  Report Type: 
  Country: None (occurrence: None)
  Receive Date: 20080108
  Receipt Date: 20080103
  Transmission Date: 20080703
  Serious: Yes (Other)
  Sender: FDA-Public Use
  Company Number: B0360357A

PATIENT
  Age: 31 Year
  Sex: Female

DRUGS (2)
  1. PAROXETINE HCL [Suspect]
     Indication: PANIC ATTACK
     Route: 065
     Dates: start: 19980929
  2. PAROXETINE HCL [Suspect]
     Dosage: 7.5ML PER DAY
     Route: 048

REACTIONS (10)
  - AGGRESSION [None]
  - AGITATION [None]
  - ANGER [None]
  - ANXIETY [None]
  - DELIVERY [None]
  - DISTURBANCE IN ATTENTION [None]
  - DIZZINESS [None]
  - DRUG WITHDRAWAL SYNDROME [None]
  - NAUSEA [None]
  - SPEECH DISORDER [None]
